FAERS Safety Report 15758048 (Version 1)
Quarter: 2018Q4

REPORT INFORMATION
  Report Type: Report from Study
  Country: US (occurrence: US)
  Receive Date: 20181225
  Receipt Date: 20181225
  Transmission Date: 20190205
  Serious: No
  Sender: FDA-Public Use
  Company Number: PHEH2018US053701

PATIENT
  Sex: Male

DRUGS (1)
  1. COSENTYX [Suspect]
     Active Substance: SECUKINUMAB
     Indication: PSORIASIS
     Dosage: 300 MG, AT DAY 28 (DOSE 5) THEN EVERY 4 WEEKS AS DIRECTED
     Route: 058

REACTIONS (3)
  - Expired product administered [Unknown]
  - Oral candidiasis [Unknown]
  - Excessive skin [Unknown]
